FAERS Safety Report 9925246 (Version 2)
Quarter: 2014Q1

REPORT INFORMATION
  Report Type: Spontaneous
  Country: US (occurrence: US)
  Receive Date: 20140226
  Receipt Date: 20140226
  Transmission Date: 20141002
  Serious: Yes (Other)
  Sender: FDA-Public Use
  Company Number: US-BRACCO-009713

PATIENT
  Age: 55 Year
  Sex: Female
  Weight: 43 kg

DRUGS (3)
  1. ISOVUE 370 [Suspect]
     Indication: COMPUTERISED TOMOGRAM
     Route: 042
     Dates: start: 20130524, end: 20130524
  2. PREDNISONE [Concomitant]
     Dosage: 12 HOURS PRIOR TO PROCEDURE
     Dates: start: 20130523, end: 20130523
  3. PREDNISONE [Concomitant]
     Dosage: 2 HOURS PRIOR TO PROCEDURE
     Dates: start: 20130524, end: 20130524

REACTIONS (1)
  - Throat tightness [Recovering/Resolving]
